FAERS Safety Report 4639485-4 (Version None)
Quarter: 2005Q2

REPORT INFORMATION
  Report Type: 
  Country: None (occurrence: None)
  Receive Date: 20050418
  Receipt Date: 20050411
  Transmission Date: 20051028
  Serious: Yes (Death)
  Sender: FDA-Public Use
  Company Number: GBWYE571111APR05

PATIENT
  Age: 64 Year
  Sex: Female

DRUGS (9)
  1. ADVIL [Suspect]
     Dosage: 200 MG 3X PER 1 DAY ORAL
     Route: 048
  2. AMOXICILLIN [Suspect]
  3. ATROVENT [Suspect]
     Indication: CHRONIC OBSTRUCTIVE PULMONARY DISEASE
     Dosage: 2ML INHALATION
     Route: 055
  4. OXYGEN (OXYGEN, , 0) [Suspect]
  5. PHYLLOCONTIN CONTINUS (AMINOPHYLLINE, , 0) [Suspect]
     Dosage: 225 MG 2X PER 1 DAY
  6. PREDNISOLONE [Suspect]
     Dosage: 5MG ORAL
     Route: 048
  7. SALBUTAMOL (SALBUTAMOL, , 0) [Suspect]
     Dosage: 5MG INHALATION
     Route: 055
  8. SERETIDE (SALMETEROL/FLUTICASONE, , 0) [Suspect]
     Dosage: (25/125) 2 PUFFS TWICE DAILY INHALATION
     Route: 055
  9. VENTODISKS (SALBUTAMOL SULFATE, , 0) [Suspect]
     Dosage: 400 UG 4X PER 1 DAY

REACTIONS (2)
  - BRONCHOPNEUMONIA [None]
  - EMPHYSEMA [None]
